FAERS Safety Report 8391190-7 (Version None)
Quarter: 2012Q2

REPORT INFORMATION
  Report Type: 
  Country: None (occurrence: None)
  Receive Date: 20120529
  Receipt Date: 20120516
  Transmission Date: 20120825
  Serious: Yes (Hospitalization)
  Sender: FDA-Public Use
  Company Number: JP-ELI_LILLY_AND_COMPANY-JP201204008884

PATIENT
  Sex: Female

DRUGS (8)
  1. FLUVOXAMINE MALEATE [Concomitant]
     Indication: DEPRESSION
     Dosage: 150 MG, BID
     Route: 048
     Dates: start: 20101117, end: 20111018
  2. FLUVOXAMINE MALEATE [Concomitant]
     Dosage: 100 MG, BID
     Route: 048
     Dates: start: 20111019, end: 20111028
  3. CYMBALTA [Suspect]
     Indication: DEPRESSION
     Dosage: 20 MG, QD
     Route: 048
     Dates: start: 20111019, end: 20111028
  4. LENDORMIN [Concomitant]
     Indication: INSOMNIA
     Dosage: 0.25 MG, QD
     Route: 048
     Dates: start: 20101117, end: 20111028
  5. LORAZEPAM [Concomitant]
     Indication: DEPRESSION
     Dosage: 0.5 MG, QD
     Route: 048
     Dates: start: 20101208, end: 20111028
  6. SILECE [Concomitant]
     Indication: INSOMNIA
     Dosage: 1 MG, QD
     Route: 048
     Dates: start: 20101222, end: 20111028
  7. AMOBAN [Concomitant]
     Indication: INSOMNIA
     Dosage: 10 MG, QD
     Route: 048
     Dates: start: 20100105, end: 20111028
  8. REFLEX                             /01293201/ [Concomitant]
     Indication: DEPRESSION
     Dosage: 30 MG, QD
     Route: 048
     Dates: start: 20101124, end: 20111028

REACTIONS (1)
  - ASTHMA [None]
